FAERS Safety Report 20735785 (Version 6)
Quarter: 2022Q3

REPORT INFORMATION
  Report Type: Report from Study
  Country: US (occurrence: US)
  Receive Date: 20220421
  Receipt Date: 20220725
  Transmission Date: 20221027
  Serious: Yes (Other)
  Sender: FDA-Public Use
  Company Number: US-NOVARTISPH-NVSC2022US092037

PATIENT
  Age: 83 Year
  Sex: Female

DRUGS (3)
  1. ENTRESTO [Suspect]
     Active Substance: SACUBITRIL\VALSARTAN
     Indication: Cardiac failure
     Dosage: 1 DOSAGE FORM, BID
     Route: 048
     Dates: start: 202202
  2. METOPROLOL [Concomitant]
     Active Substance: METOPROLOL
     Indication: Product used for unknown indication
     Dosage: UNK (FROM YEARS NOW)
     Route: 065
     Dates: start: 20220516
  3. METOPROLOL [Concomitant]
     Active Substance: METOPROLOL
     Dosage: UNK (DOUBLED DOSE (LAST WK))
     Route: 065

REACTIONS (8)
  - Ejection fraction decreased [Unknown]
  - Blood glucose fluctuation [Unknown]
  - Arthritis [Unknown]
  - Stenosis [Unknown]
  - Peripheral swelling [Recovering/Resolving]
  - Contusion [Unknown]
  - Dysphonia [Unknown]
  - Hypotension [Unknown]

NARRATIVE: CASE EVENT DATE: 20220201
